FAERS Safety Report 17872984 (Version 3)
Quarter: 2020Q3

REPORT INFORMATION
  Report Type: Report from Study
  Country: US (occurrence: US)
  Receive Date: 20200608
  Receipt Date: 20200917
  Transmission Date: 20201103
  Serious: Yes (Hospitalization)
  Sender: FDA-Public Use
  Company Number: US-VIFOR (INTERNATIONAL) INC.-VIT-2020-05741

PATIENT
  Age: 60 Year
  Sex: Female

DRUGS (6)
  1. VELTASSA [Suspect]
     Active Substance: PATIROMER
     Route: 048
     Dates: start: 20200508
  2. VELTASSA [Suspect]
     Active Substance: PATIROMER
     Dosage: APPROXIMATELY 4 MONTHS
     Route: 048
     Dates: start: 202005
  3. SODIUM POLY SUL [Concomitant]
     Dosage: 15 GRAM DAILY FOR 10 DAYS.
     Route: 048
  4. VELTASSA [Suspect]
     Active Substance: PATIROMER
     Indication: HYPERKALAEMIA
     Dosage: SINGLE DOSE
     Route: 048
     Dates: start: 20200502
  5. VELTASSA [Suspect]
     Active Substance: PATIROMER
     Route: 048
  6. AMOXICILLIN. [Concomitant]
     Active Substance: AMOXICILLIN
     Dosage: 250 MG EVERY 12 HOURS
     Route: 048

REACTIONS (6)
  - Weight increased [Unknown]
  - Pulmonary oedema [Unknown]
  - Fatigue [Unknown]
  - Diarrhoea [Unknown]
  - Constipation [Unknown]
  - Hospitalisation [Unknown]

NARRATIVE: CASE EVENT DATE: 2020
